FAERS Safety Report 4345174-6 (Version None)
Quarter: 2004Q2

REPORT INFORMATION
  Report Type: 
  Country: None (occurrence: None)
  Receive Date: 20040422
  Receipt Date: 20040422
  Transmission Date: 20050107
  Serious: Yes (Hospitalization)
  Sender: FDA-Public Use
  Company Number: None

PATIENT
  Age: 58 Year
  Sex: Male
  Weight: 74.8435 kg

DRUGS (7)
  1. CARBOPLATIN [Suspect]
     Indication: SMALL CELL LUNG CANCER STAGE UNSPECIFIED
     Dosage: 250 MG IVPB
     Route: 042
     Dates: start: 20040415
  2. TOPOTECAN [Suspect]
     Indication: SMALL CELL LUNG CANCER STAGE UNSPECIFIED
     Dosage: 5.0 MG IVPB
     Route: 042
     Dates: start: 20040415
  3. ATACAND [Concomitant]
  4. ACIPHEX [Concomitant]
  5. PREDNISONE [Concomitant]
  6. FLOVENT [Concomitant]
  7. COMBIVENT [Concomitant]

REACTIONS (2)
  - FLANK PAIN [None]
  - HERPES ZOSTER [None]
